FAERS Safety Report 4804740-1 (Version None)
Quarter: 2005Q4

REPORT INFORMATION
  Report Type: 
  Country: None (occurrence: None)
  Receive Date: 20051020
  Receipt Date: 20050801
  Transmission Date: 20060501
  Serious: Yes (Hospitalization, Other)
  Sender: FDA-Public Use
  Company Number: PHNU2005DE02727

PATIENT
  Age: 29 Year
  Sex: Male
  Weight: 62 kg

DRUGS (1)
  1. TRILEPTAL [Suspect]
     Indication: EPILEPSY
     Dosage: 300 MG, BID
     Route: 048
     Dates: start: 20001017

REACTIONS (10)
  - ANOREXIA [None]
  - CHEST DISCOMFORT [None]
  - DEPRESSION [None]
  - DISTURBANCE IN ATTENTION [None]
  - DYSPNOEA [None]
  - HYPERHIDROSIS [None]
  - PANIC ATTACK [None]
  - PARAESTHESIA [None]
  - RESPIRATORY DISORDER [None]
  - SPEECH DISORDER [None]
